FAERS Safety Report 11092422 (Version 1)
Quarter: 2015Q2

REPORT INFORMATION
  Report Type: Spontaneous
  Country: CN (occurrence: None)
  Receive Date: 20150504
  Receipt Date: 20150504
  Transmission Date: 20150821
  Serious: Yes (Death)
  Sender: FDA-Public Use
  Company Number: 2015CDR00002

PATIENT

DRUGS (1)
  1. METHIMAZOLE (METHIMAZOLE) UNKNOWN [Suspect]
     Active Substance: METHIMAZOLE
     Indication: BASEDOW^S DISEASE

REACTIONS (2)
  - Cholestasis [None]
  - Hepatotoxicity [None]
